FAERS Safety Report 5268428-8 (Version None)
Quarter: 2007Q1

REPORT INFORMATION
  Report Type: 
  Country: None (occurrence: None)
  Receive Date: 20070319
  Receipt Date: 20070306
  Transmission Date: 20070707
  Serious: Yes (Hospitalization)
  Sender: FDA-Public Use
  Company Number: DE-GLAXOSMITHKLINE-B0461822A

PATIENT
  Age: 6 Year
  Sex: Male

DRUGS (2)
  1. TOPOTECAN [Suspect]
     Indication: NEUROBLASTOMA
     Dosage: 1MGM2 PER DAY
     Route: 042
  2. ETOPOSIDE [Suspect]
     Indication: NEUROBLASTOMA
     Dosage: 100MGM2 PER DAY
     Route: 042

REACTIONS (3)
  - ASPERGILLOSIS [None]
  - ENTEROCOLITIS [None]
  - FEBRILE NEUTROPENIA [None]
